FAERS Safety Report 4289129-9 (Version None)
Quarter: 2004Q1

REPORT INFORMATION
  Report Type: 
  Country: None (occurrence: None)
  Receive Date: 20040210
  Receipt Date: 20031218
  Transmission Date: 20041129
  Serious: Yes (Other)
  Sender: FDA-Public Use
  Company Number: PHEH2003US11580

PATIENT
  Age: 62 Year
  Sex: Male
  Weight: 93 kg

DRUGS (2)
  1. ZOMETA [Suspect]
     Indication: MULTIPLE MYELOMA
     Dosage: 4 MG MONTHLY
     Route: 042
     Dates: start: 20020325, end: 20031111
  2. THALIDOMIDE [Concomitant]
     Indication: MULTIPLE MYELOMA
     Dosage: 200 MG, QD
     Route: 048
     Dates: start: 20020301

REACTIONS (7)
  - ASEPTIC NECROSIS BONE [None]
  - BONE DISORDER [None]
  - DENTAL TREATMENT [None]
  - EATING DISORDER [None]
  - PAIN [None]
  - TOOTH ABSCESS [None]
  - TOOTH INFECTION [None]
